FAERS Safety Report 10974769 (Version 1)
Quarter: 2015Q1

REPORT INFORMATION
  Report Type: Spontaneous
  Country: US (occurrence: None)
  Receive Date: 20150226
  Receipt Date: 20150226
  Transmission Date: 20150721
  Serious: No
  Sender: FDA-Public Use
  Company Number: TPA2010A05384

PATIENT
  Age: 6 Decade
  Sex: Male

DRUGS (4)
  1. UNKNOWN MEDICATIONS FOR DIABETES (DRUG USED IN DIABETES) [Concomitant]
  2. ULORIC [Suspect]
     Active Substance: FEBUXOSTAT
     Indication: GOUTY TOPHUS
     Route: 048
     Dates: end: 201010
  3. RED RICE YEAST [Suspect]
     Active Substance: DIETARY SUPPLEMENT
     Route: 048
     Dates: start: 2010, end: 201010
  4. UNKNOWN MEDICATIONS FOR LIPIDS (SERUMLIPIDREDUCING AGENTS) [Concomitant]

REACTIONS (1)
  - Liver function test abnormal [None]

NARRATIVE: CASE EVENT DATE: 201008
